FAERS Safety Report 9027938 (Version 1)
Quarter: 2013Q1

REPORT INFORMATION
  Report Type: Spontaneous
  Country: US (occurrence: None)
  Receive Date: 20130114
  Receipt Date: 20130114
  Transmission Date: 20140127
  Serious: Yes (Other)
  Sender: FDA-Public Use
  Company Number: None

PATIENT
  Age: 58 Year
  Sex: Female
  Weight: 5.5 kg

DRUGS (1)
  1. ZOLPIDEM [Suspect]
     Indication: INSOMNIA
     Dosage: 10MG X1 ORAL
     Route: 048
     Dates: start: 20121216, end: 20121219

REACTIONS (9)
  - Anxiety [None]
  - Panic reaction [None]
  - Palpitations [None]
  - Thinking abnormal [None]
  - Retching [None]
  - Nausea [None]
  - Crying [None]
  - Dyspnoea [None]
  - Middle insomnia [None]
